FAERS Safety Report 19578627 (Version 2)
Quarter: 2021Q3

REPORT INFORMATION
  Report Type: Spontaneous
  Country: GB (occurrence: GB)
  Receive Date: 20210720
  Receipt Date: 20210727
  Transmission Date: 20211014
  Serious: Yes (Other)
  Sender: FDA-Public Use
  Company Number: GB-B.I. PHARMACEUTICALS,INC./RIDGEFIELD-2021-BI-116021

PATIENT
  Age: 77 Year
  Sex: Female
  Weight: 67 kg

DRUGS (15)
  1. LEVOTHYROXINE. [Concomitant]
     Active Substance: LEVOTHYROXINE
     Indication: ILL-DEFINED DISORDER
     Dosage: ONE TO BE TAKEN DAILY
     Dates: start: 20201119
  2. ZEROBASE [PARAFFIN] [Concomitant]
     Indication: ILL-DEFINED DISORDER
     Dosage: APPLY FREQUENTLY TO KEEP SKIN MOIST
     Route: 061
     Dates: start: 20201119, end: 20210426
  3. COCODAMOL [Concomitant]
     Active Substance: ACETAMINOPHEN\CODEINE PHOSPHATE
     Indication: ILL-DEFINED DISORDER
     Dosage: TWO TO BE TAKEN FOUR TIMES A DAY AS REQUIRED
     Dates: start: 20201119
  4. ATORVASTATIN [Concomitant]
     Active Substance: ATORVASTATIN
     Indication: ILL-DEFINED DISORDER
     Dosage: TAKE ONE TABLET DAILY
     Dates: start: 20201119
  5. ADCAL [CALCIUM CARBONATE] [Concomitant]
     Indication: ILL-DEFINED DISORDER
     Dosage: TAKE TWO TABLETS TWICE DAILY
     Dates: start: 20201119
  6. ALENDRONIC ACID [Concomitant]
     Active Substance: ALENDRONIC ACID
     Indication: ILL-DEFINED DISORDER
     Dosage: TAKE ONE TABLET ONCE WEEKLY WITH A FULL GLASS O...
     Dates: start: 20201119
  7. HYDROCORTISONE. [Concomitant]
     Active Substance: HYDROCORTISONE
     Indication: ILL-DEFINED DISORDER
     Dosage: APPLY TWICE DAILY
     Dates: start: 20210422, end: 20210506
  8. GLICLAZIDE [Concomitant]
     Active Substance: GLICLAZIDE
     Indication: ILL-DEFINED DISORDER
     Dosage: TAKE 2 TABLETS IN THE MORNING AND ONE IN THE EV...
     Dates: start: 20201119
  9. ASPIRIN [ACETYLSALICYLIC ACID] [Concomitant]
     Active Substance: ASPIRIN
     Indication: ILL-DEFINED DISORDER
     Dosage: ONE TO BE TAKEN DAILY
     Dates: start: 20201119
  10. METFORMIN [Concomitant]
     Active Substance: METFORMIN HYDROCHLORIDE
     Indication: ILL-DEFINED DISORDER
     Dosage: TWO TO BE TAKEN TWICE A DAY
     Dates: start: 20201119
  11. ADCAL [CALCIUM CARBONATE] [Concomitant]
     Indication: ILL-DEFINED DISORDER
     Dosage: TAKE TWO TABLETS TWICE DAILY
     Dates: start: 20201119
  12. FENBID [Concomitant]
     Active Substance: IBUPROFEN
     Indication: ILL-DEFINED DISORDER
     Dosage: APPLY 3 TIMES/DAY
     Dates: start: 20210712
  13. TRAJENTA [Suspect]
     Active Substance: LINAGLIPTIN
     Indication: PRODUCT USED FOR UNKNOWN INDICATION
     Dates: start: 20210407
  14. LANSOPRAZOLE. [Concomitant]
     Active Substance: LANSOPRAZOLE
     Indication: ILL-DEFINED DISORDER
     Dosage: 1 ONCE DAILY
     Dates: start: 20201119
  15. HYDROMOL [SODIUM PIDOLATE] [Concomitant]
     Indication: ILL-DEFINED DISORDER
     Dosage: USE AS LIBERALLY FREQUENTLY
     Dates: start: 20210426, end: 20210510

REACTIONS (2)
  - Abdominal pain upper [Recovered/Resolved]
  - Abdominal pain upper [Recovered/Resolved]

NARRATIVE: CASE EVENT DATE: 202104
